FAERS Safety Report 6060607-5 (Version None)
Quarter: 2009Q1

REPORT INFORMATION
  Report Type: 
  Country: None (occurrence: None)
  Receive Date: 20090202
  Receipt Date: 20090127
  Transmission Date: 20090719
  Serious: Yes (Death, Hospitalization)
  Sender: FDA-Public Use
  Company Number: US-BRISTOL-MYERS SQUIBB COMPANY-14466601

PATIENT
  Age: 87 Year
  Sex: Male
  Weight: 74 kg

DRUGS (25)
  1. CETUXIMAB [Suspect]
     Indication: PROSTATE CANCER METASTATIC
     Dosage: INITIAL DOSE: 02-DEC-2008: 106.2857MG (CHIMERIC ANTI-EGFR MAB) DURATION 28 DAYS
     Route: 042
     Dates: start: 20081202, end: 20081230
  2. NOVANTRONE [Suspect]
     Indication: PROSTATE CANCER METASTATIC
     Dosage: 22 MG 1 IN 3 WEEK
     Route: 042
     Dates: start: 20081202, end: 20081223
  3. REMERON [Concomitant]
     Indication: DEPRESSION
     Route: 048
     Dates: start: 20080822, end: 20090103
  4. ZOCOR [Concomitant]
     Indication: HYPERLIPIDAEMIA
     Route: 048
     Dates: start: 20020401, end: 20090103
  5. ASPIRIN [Concomitant]
     Indication: PROPHYLAXIS
     Route: 048
     Dates: start: 19990101, end: 20090103
  6. TENORMIN [Concomitant]
     Indication: MYOCARDIAL INFARCTION
     Route: 048
     Dates: start: 20020401, end: 20090103
  7. LUPRON [Concomitant]
     Indication: PROSTATE CANCER
     Route: 030
     Dates: start: 20081014, end: 20081014
  8. MULTI-VITAMINS [Concomitant]
     Indication: SUPPLEMENTATION THERAPY
     Dosage: 1 DOSAGE FORM = 1 TABLET.
     Route: 048
     Dates: start: 20020401, end: 20090103
  9. SELENIUM [Concomitant]
     Indication: SUPPLEMENTATION THERAPY
     Route: 048
     Dates: start: 20021119, end: 20090103
  10. TYLENOL W/ CODEINE NO. 3 [Concomitant]
     Indication: PAIN
     Dosage: 1 DOSAGE FORM = 1 TABLETS, Q4H.
     Route: 048
     Dates: start: 20050114, end: 20090103
  11. MEGACE [Concomitant]
     Indication: ANOREXIA
     Route: 048
     Dates: start: 20080908, end: 20090103
  12. COMPAZINE [Concomitant]
     Indication: ANTIEMETIC SUPPORTIVE CARE
     Dosage: FREQUENCY: Q6H.
     Route: 048
     Dates: start: 20080922, end: 20090103
  13. TUMS [Concomitant]
     Indication: DYSPEPSIA
     Route: 048
     Dates: start: 19970101, end: 20090103
  14. PREDNISONE [Concomitant]
     Indication: PROSTATE CANCER
     Route: 048
     Dates: start: 20081208, end: 20090103
  15. ZOFRAN [Concomitant]
     Indication: ANTIEMETIC SUPPORTIVE CARE
     Route: 042
     Dates: start: 20090103, end: 20090103
  16. MORPHINE [Concomitant]
     Indication: PAIN
     Route: 042
     Dates: start: 20090103, end: 20090101
  17. LORTAB [Concomitant]
     Indication: PAIN
     Dosage: FREQUENCY: Q4H.
     Route: 048
     Dates: start: 20090103, end: 20090103
  18. ATIVAN [Concomitant]
     Indication: ANXIETY
     Dosage: 1 DOSAGE FORM = 0.5-2 MG. FREQUENCY: Q4H, PRN.
     Route: 042
     Dates: start: 20090103, end: 20090104
  19. ATIVAN [Concomitant]
     Indication: ANTIEMETIC SUPPORTIVE CARE
     Dosage: 1 DOSAGE FORM = 0.5-2 MG. FREQUENCY: Q4H, PRN.
     Route: 042
     Dates: start: 20090103, end: 20090104
  20. FRAGMIN [Concomitant]
     Indication: ANTICOAGULANT THERAPY
     Dosage: 1 DOSAGE FORM = 5000 (UNITS NOT MENTIONED).
     Route: 058
     Dates: start: 20090103, end: 20090104
  21. LASIX [Concomitant]
     Indication: POLYURIA
     Route: 042
     Dates: start: 20090104, end: 20090104
  22. DOPAMINE HCL [Concomitant]
     Indication: HYPOTENSION
     Dosage: 5 DOSAGE FORM = 5 MCG/KG/MIN.
     Dates: start: 20090103, end: 20090105
  23. PROTONIX [Concomitant]
     Indication: GASTROOESOPHAGEAL REFLUX DISEASE
     Route: 042
     Dates: start: 20090103, end: 20090104
  24. DUONEB [Concomitant]
     Indication: CHRONIC OBSTRUCTIVE PULMONARY DISEASE
     Dosage: FREQUENCY: Q6H.
     Route: 055
     Dates: start: 20090104, end: 20090104
  25. LEVOPHED [Concomitant]
     Indication: HYPOTENSION
     Dosage: 1 DOSAGE FORM = 0.5-1.0 MCG/MIN.
     Route: 042
     Dates: start: 20090105, end: 20090105

REACTIONS (3)
  - MULTI-ORGAN FAILURE [None]
  - NEUTROPENIA [None]
  - PNEUMONIA [None]
